FAERS Safety Report 8916697 (Version 3)
Quarter: 2013Q1

REPORT INFORMATION
  Report Type: Spontaneous
  Country: IT (occurrence: IT)
  Receive Date: 20121120
  Receipt Date: 20130107
  Transmission Date: 20140127
  Serious: Yes (Hospitalization)
  Sender: FDA-Public Use
  Company Number: IT-ROCHE-1157212

PATIENT
  Age: 80 Year
  Sex: Female

DRUGS (5)
  1. VALIUM [Suspect]
     Indication: AGITATION
     Dosage: 10MG/2ML INJECTABLE SOLUTION
     Route: 030
     Dates: start: 20121014, end: 20121014
  2. ALPRAZOLAM [Suspect]
     Indication: ANXIETY
     Route: 048
     Dates: start: 20120101, end: 20121014
  3. GABAPENTIN [Concomitant]
     Indication: PSYCHOTIC DISORDER
     Route: 048
  4. HUMULIN [Concomitant]
     Indication: TYPE 2 DIABETES MELLITUS
     Route: 058
  5. SEROQUEL [Concomitant]
     Indication: PSYCHOTIC DISORDER
     Route: 065

REACTIONS (2)
  - Sopor [Recovered/Resolved]
  - Toxicity to various agents [Recovered/Resolved]
